FAERS Safety Report 24792288 (Version 1)
Quarter: 2024Q4

REPORT INFORMATION
  Report Type: Spontaneous
  Country: IN (occurrence: IN)
  Receive Date: 20241231
  Receipt Date: 20241231
  Transmission Date: 20250115
  Serious: Yes (Other)
  Sender: MERCK
  Company Number: US-002147023-NVSC2024US061822

PATIENT
  Sex: Male
  Weight: 107.48 kg

DRUGS (24)
  1. KEYTRUDA [Suspect]
     Active Substance: PEMBROLIZUMAB
     Indication: Thyroid cancer
  2. KEYTRUDA [Suspect]
     Active Substance: PEMBROLIZUMAB
     Indication: Metastases to bone
  3. ZOMETA [Suspect]
     Active Substance: ZOLEDRONIC ACID
     Indication: Thyroid cancer
  4. ZOMETA [Suspect]
     Active Substance: ZOLEDRONIC ACID
     Indication: Metastases to bone
  5. CABOMETYX [Suspect]
     Active Substance: CABOZANTINIB S-MALATE
     Indication: Thyroid cancer
     Dosage: 40 MILLIGRAM, QD
     Route: 048
     Dates: start: 20211118
  6. CABOMETYX [Suspect]
     Active Substance: CABOZANTINIB S-MALATE
     Indication: Metastases to bone
     Dosage: 40 MILLIGRAM, QD
     Route: 048
     Dates: start: 20231101
  7. DIGOXIN [Concomitant]
     Active Substance: DIGOXIN
  8. CHOLECALCIFEROL [Concomitant]
     Active Substance: CHOLECALCIFEROL
  9. VITAMINS [Concomitant]
     Active Substance: VITAMINS
  10. EPLERENONE [Concomitant]
     Active Substance: EPLERENONE
  11. MAGNESIUM [Concomitant]
     Active Substance: MAGNESIUM
  12. ELIQUIS [Concomitant]
     Active Substance: APIXABAN
  13. BUMETANIDE [Concomitant]
     Active Substance: BUMETANIDE
  14. METFORMIN [Concomitant]
     Active Substance: METFORMIN HYDROCHLORIDE
  15. CARVEDILOL [Concomitant]
     Active Substance: CARVEDILOL
  16. SYNTHROID [Concomitant]
     Active Substance: LEVOTHYROXINE SODIUM
  17. PREVACID [Concomitant]
     Active Substance: LANSOPRAZOLE
  18. CALCIUM CITRATE\CHOLECALCIFEROL [Concomitant]
     Active Substance: CALCIUM CITRATE\CHOLECALCIFEROL
  19. AMLODIPINE [Concomitant]
     Active Substance: AMLODIPINE BESYLATE
  20. JARDIANCE [Concomitant]
     Active Substance: EMPAGLIFLOZIN
  21. LOSARTAN [Concomitant]
     Active Substance: LOSARTAN
  22. GABAPENTIN [Concomitant]
     Active Substance: GABAPENTIN
  23. CRESTOR [Concomitant]
     Active Substance: ROSUVASTATIN CALCIUM
  24. DOXAZOSIN [Concomitant]
     Active Substance: DOXAZOSIN\DOXAZOSIN MESYLATE

REACTIONS (3)
  - Bone lesion [Recovering/Resolving]
  - Osteomyelitis [Recovering/Resolving]
  - Oral disorder [Recovering/Resolving]
